FAERS Safety Report 5392102-0 (Version None)
Quarter: 2007Q3

REPORT INFORMATION
  Report Type: 
  Country: None (occurrence: None)
  Receive Date: 20070717
  Receipt Date: 20070717
  Transmission Date: 20080115
  Serious: No
  Sender: FDA-Public Use
  Company Number: None

PATIENT
  Age: 59 Year
  Sex: Male
  Weight: 81.6475 kg

DRUGS (2)
  1. ZOMETA [Suspect]
     Indication: OFF LABEL USE
     Dates: start: 20070612, end: 20070612
  2. ZOMETA [Suspect]
     Indication: PROSTATE CANCER
     Dates: start: 20070612, end: 20070612

REACTIONS (10)
  - ACUTE PHASE REACTION [None]
  - ASTHENIA [None]
  - BONE PAIN [None]
  - DIZZINESS [None]
  - FEELING ABNORMAL [None]
  - HEADACHE [None]
  - INFUSION RELATED REACTION [None]
  - MALAISE [None]
  - MYALGIA [None]
  - PYREXIA [None]
